FAERS Safety Report 7261486-0 (Version None)
Quarter: 2011Q1

REPORT INFORMATION
  Report Type: 
  Country: None (occurrence: None)
  Receive Date: 20110130
  Receipt Date: 20101026
  Transmission Date: 20110831
  Serious: No
  Sender: FDA-Public Use
  Company Number: US-ABBOTT-10P-163-0672503-00

PATIENT
  Age: 32 Year
  Sex: Female

DRUGS (7)
  1. HUMIRA [Suspect]
     Indication: PSORIASIS
     Dates: start: 20100901
  2. COUMADIN [Concomitant]
     Indication: IMPLANTABLE DEFIBRILLATOR INSERTION
  3. PRAVACHOL [Concomitant]
     Indication: CARDIAC DISORDER
  4. SPIRONOLACTONE [Concomitant]
     Indication: FLUID RETENTION
  5. METHOTREXATE [Concomitant]
     Indication: ARTHRITIS
     Dosage: 3 ON FRIDAY AND SATURDAY
  6. EXTORIM [Concomitant]
     Indication: CARDIAC DISORDER
     Dosage: DAILY
  7. BENECOL [Concomitant]
     Indication: BLOOD PRESSURE

REACTIONS (4)
  - INJECTION SITE HAEMORRHAGE [None]
  - WRONG DRUG ADMINISTERED [None]
  - WRONG TECHNIQUE IN DRUG USAGE PROCESS [None]
  - INCORRECT ROUTE OF DRUG ADMINISTRATION [None]
